FAERS Safety Report 5571461-X (Version None)
Quarter: 2007Q4

REPORT INFORMATION
  Report Type: 
  Country: None (occurrence: None)
  Receive Date: 20071221
  Receipt Date: 20071218
  Transmission Date: 20080405
  Serious: Yes (Hospitalization)
  Sender: FDA-Public Use
  Company Number: PHHO2007DE10398

PATIENT
  Age: 72 Year
  Sex: Female

DRUGS (1)
  1. AMN107 [Suspect]
     Indication: CHRONIC MYELOID LEUKAEMIA
     Dosage: 600 MG, QD
     Route: 048
     Dates: start: 20041102

REACTIONS (4)
  - COLLAGEN DISORDER [None]
  - ECZEMA [None]
  - RASH [None]
  - TRANSIENT ACANTHOLYTIC DERMATOSIS [None]
